FAERS Safety Report 6162643-7 (Version None)
Quarter: 2009Q2

REPORT INFORMATION
  Report Type: 
  Country: None (occurrence: None)
  Receive Date: 20090421
  Receipt Date: 20080506
  Transmission Date: 20091009
  Serious: No
  Sender: FDA-Public Use
  Company Number: US-ASTRAZENECA-2008UW09319

PATIENT
  Age: 80 Year
  Sex: Male
  Weight: 84.4 kg

DRUGS (12)
  1. CASODEX [Suspect]
     Indication: PROSTATE CANCER
     Route: 048
     Dates: start: 20070101
  2. CASODEX [Suspect]
     Route: 048
     Dates: start: 20080501
  3. ZOLADEX [Concomitant]
     Route: 058
  4. AVALIDE [Concomitant]
     Dosage: 300-25 QD
  5. TOPROL-XL [Concomitant]
     Route: 048
  6. PLAVIX [Concomitant]
  7. ESOMEPRAZOLE [Concomitant]
     Route: 048
  8. LESCOL [Concomitant]
  9. CLOTRIMAZOLE [Concomitant]
     Indication: RASH
     Route: 061
  10. ASPIRIN [Concomitant]
  11. NTG SPRAY [Concomitant]
  12. FELODIPINE [Concomitant]

REACTIONS (2)
  - PROSTATIC SPECIFIC ANTIGEN DECREASED [None]
  - PROSTATIC SPECIFIC ANTIGEN INCREASED [None]
